FAERS Safety Report 23602131 (Version 1)
Quarter: 2024Q1

REPORT INFORMATION
  Report Type: Spontaneous
  Country: US (occurrence: US)
  Receive Date: 20240306
  Receipt Date: 20240306
  Transmission Date: 20240410
  Serious: No
  Sender: FDA-Public Use
  Company Number: US-SANOFI-01962796

PATIENT
  Sex: Female

DRUGS (12)
  1. DUPIXENT [Suspect]
     Active Substance: DUPILUMAB
     Indication: Asthma
     Dosage: 300 MG, QOW
     Route: 058
  2. AMITRIPTYLINE [Concomitant]
     Active Substance: AMITRIPTYLINE
  3. ATORVASTATIN [Concomitant]
     Active Substance: ATORVASTATIN
  4. BREZTRI [Concomitant]
     Active Substance: BUDESONIDE\FORMOTEROL\GLYCOPYRROLATE
  5. COREG [Concomitant]
     Active Substance: CARVEDILOL
  6. DOXYCYCLINE [Concomitant]
     Active Substance: DOXYCYCLINE
  7. ESTRACE [Concomitant]
     Active Substance: ESTRADIOL
  8. KLONOPIN [Concomitant]
     Active Substance: CLONAZEPAM
  9. MUCINEX [Concomitant]
     Active Substance: GUAIFENESIN
  10. NEXIUM [Concomitant]
     Active Substance: ESOMEPRAZOLE MAGNESIUM
  11. VISTARIL (HYDROXYZINE HYDROCHLORIDE) [Concomitant]
     Active Substance: HYDROXYZINE HYDROCHLORIDE
  12. VITAMIN D2 [Concomitant]
     Active Substance: ERGOCALCIFEROL

REACTIONS (1)
  - Drug ineffective [Unknown]
